FAERS Safety Report 15552320 (Version 1)
Quarter: 2018Q4

REPORT INFORMATION
  Report Type: Spontaneous
  Country: DE (occurrence: DE)
  Receive Date: 20181025
  Receipt Date: 20181025
  Transmission Date: 20190205
  Serious: Yes (Other)
  Sender: FDA-Public Use
  Company Number: DE-SA-2017SA241274

PATIENT
  Age: 88 Year
  Sex: Female
  Weight: 70 kg

DRUGS (2)
  1. LIDOCAINE HYDROCHLORIDE. [Suspect]
     Active Substance: LIDOCAINE HYDROCHLORIDE
     Indication: ANAESTHESIA
     Dosage: UNK
     Route: 061
  2. SUFENTANIL [Suspect]
     Active Substance: SUFENTANIL
     Indication: SEDATION
     Dosage: 5 UG,UNK
     Route: 042

REACTIONS (3)
  - Dyspnoea [Recovering/Resolving]
  - Vocal cord disorder [Recovering/Resolving]
  - Stridor [Recovering/Resolving]
